FAERS Safety Report 22769700 (Version 11)
Quarter: 2024Q3

REPORT INFORMATION
  Report Type: Spontaneous
  Country: CA (occurrence: CA)
  Receive Date: 20230801
  Receipt Date: 20240917
  Transmission Date: 20241017
  Serious: Yes (Other)
  Sender: CELLTRION
  Company Number: CA-CELLTRION INC.-2021CA007651

PATIENT

DRUGS (13)
  1. INFLECTRA [Suspect]
     Active Substance: INFLIXIMAB-DYYB
     Indication: Crohn^s disease
     Dosage: 300 MG EVERY 0,2,6, THEN Q 8 WEEKS
     Route: 042
     Dates: start: 20210413
  2. INFLECTRA [Suspect]
     Active Substance: INFLIXIMAB-DYYB
     Dosage: 300 MG EVERY 0,2,6, THEN Q 8 WEEKS
     Route: 042
     Dates: start: 20210428
  3. INFLECTRA [Suspect]
     Active Substance: INFLIXIMAB-DYYB
     Dosage: 300 MG EVERY 0,2,6, THEN Q 8 WEEKS
     Route: 042
     Dates: start: 20220721
  4. INFLECTRA [Suspect]
     Active Substance: INFLIXIMAB-DYYB
     Dosage: 300 MG, EVERY 8 WEEKS
     Route: 042
     Dates: start: 20220915
  5. INFLECTRA [Suspect]
     Active Substance: INFLIXIMAB-DYYB
     Dosage: 300 MG, EVERY 8 WEEKS
     Route: 042
     Dates: start: 20230523
  6. INFLECTRA [Suspect]
     Active Substance: INFLIXIMAB-DYYB
     Dosage: 300 MG, Q 0,2,6, THEN Q 8 WEEKS
     Route: 042
     Dates: start: 20230801
  7. INFLECTRA [Suspect]
     Active Substance: INFLIXIMAB-DYYB
     Dosage: 300 MG, Q 0,2,6, THEN Q 8 WEEKS
     Route: 042
     Dates: start: 20230926
  8. INFLECTRA [Suspect]
     Active Substance: INFLIXIMAB-DYYB
     Dosage: 300 MG, 8 WEEKS, Q 0,2,6, THEN Q 8 WEEKS
     Route: 042
     Dates: start: 20231121
  9. INFLECTRA [Suspect]
     Active Substance: INFLIXIMAB-DYYB
     Dosage: 300 MG, Q 0,2,6, THEN Q 8 WEEKS
     Route: 042
     Dates: start: 20240123
  10. INFLECTRA [Suspect]
     Active Substance: INFLIXIMAB-DYYB
     Dosage: 300 MG, Q 0,2,6, THEN Q 8 WEEKS (N/A MG, EVERY 8 WEEKS  )
     Route: 042
     Dates: start: 20240319
  11. INFLECTRA [Suspect]
     Active Substance: INFLIXIMAB-DYYB
     Dosage: 300 MG, Q 0,2,6, THEN Q 8 WEEKS (N/A, EVERY 8 WEEKS  )
     Route: 042
     Dates: start: 20240514
  12. INFLECTRA [Suspect]
     Active Substance: INFLIXIMAB-DYYB
     Dosage: UNK, N/A, 8 WEEKS (300 MG, Q 0,2,6, THEN Q 8 WEEKS)
     Route: 042
     Dates: start: 20240709
  13. INFLECTRA [Suspect]
     Active Substance: INFLIXIMAB-DYYB
     Dosage: 300 MG

REACTIONS (9)
  - Gingival graft [Recovering/Resolving]
  - Condition aggravated [Recovering/Resolving]
  - Constipation [Unknown]
  - Infusion related reaction [Unknown]
  - Anal fissure [Recovered/Resolved]
  - Fistula [Recovered/Resolved]
  - Arthralgia [Recovered/Resolved]
  - Off label use [Unknown]
  - Intentional product use issue [Unknown]

NARRATIVE: CASE EVENT DATE: 20230101
